FAERS Safety Report 10897174 (Version 3)
Quarter: 2016Q1

REPORT INFORMATION
  Report Type: Spontaneous
  Country: US (occurrence: US)
  Receive Date: 20150309
  Receipt Date: 20160113
  Transmission Date: 20160525
  Serious: Yes (Other)
  Sender: FDA-Public Use
  Company Number: US-PFIZER INC-2015078771

PATIENT
  Age: 73 Year
  Sex: Female
  Weight: 91 kg

DRUGS (13)
  1. VITAMIN D [Concomitant]
     Active Substance: CHOLECALCIFEROL
  2. VICTOZA [Concomitant]
     Active Substance: LIRAGLUTIDE
     Indication: DIABETES MELLITUS
     Dosage: 1.8 MG, 1X/DAY (IN THE MORNING BEFORE SHE EATS)
  3. MILK OF MAGNESIA [Suspect]
     Active Substance: MAGNESIUM HYDROXIDE
     Indication: CONSTIPATION
     Dosage: UNK
  4. INSULIN [Concomitant]
     Active Substance: INSULIN NOS
  5. LYRICA [Suspect]
     Active Substance: PREGABALIN
     Indication: SPINAL COMPRESSION FRACTURE
     Dosage: 50 MG, 3X/DAY (ONE IN MORNING, ONE NOON AND ONE NIGHT)
     Route: 048
     Dates: start: 2010
  6. BABY ASPIRIN [Concomitant]
     Active Substance: ASPIRIN
  7. LYRICA [Suspect]
     Active Substance: PREGABALIN
     Dosage: 50 MG, 3X/DAY (ONE IN THE MORNING AND 2 AT NIGHT)
     Route: 048
     Dates: start: 2008
  8. METFORMIN [Concomitant]
     Active Substance: METFORMIN HYDROCHLORIDE
     Indication: DIABETES MELLITUS
     Dosage: 500 MG, 2X/DAY
     Dates: start: 1986
  9. VITAMIN C [Concomitant]
     Active Substance: ASCORBIC ACID
  10. LYRICA [Suspect]
     Active Substance: PREGABALIN
     Indication: SPINAL CORD INJURY
     Dosage: 50 MG, BID
     Route: 048
     Dates: start: 20080527
  11. ZANAFLEX [Concomitant]
     Active Substance: TIZANIDINE HYDROCHLORIDE
     Indication: MUSCLE RELAXANT THERAPY
  12. NEXIUM [Concomitant]
     Active Substance: ESOMEPRAZOLE MAGNESIUM
  13. EFFEXOR [Concomitant]
     Active Substance: VENLAFAXINE HYDROCHLORIDE

REACTIONS (6)
  - Constipation [Not Recovered/Not Resolved]
  - Dry mouth [Unknown]
  - Skin discolouration [Not Recovered/Not Resolved]
  - Flatulence [Not Recovered/Not Resolved]
  - Bowel movement irregularity [Unknown]
  - Rectal haemorrhage [Unknown]

NARRATIVE: CASE EVENT DATE: 2010
